FAERS Safety Report 6825889-8 (Version None)
Quarter: 2010Q3

REPORT INFORMATION
  Report Type: 
  Country: None (occurrence: None)
  Receive Date: 20100707
  Receipt Date: 20100707
  Transmission Date: 20110219
  Serious: Yes (Disabling, Other)
  Sender: FDA-Public Use
  Company Number: None

PATIENT
  Age: 85 Year
  Sex: Female
  Weight: 52.1637 kg

DRUGS (1)
  1. PLAVIX [Suspect]
     Dosage: 75MG 1 A DAY ORAL
     Route: 048
     Dates: start: 20080101, end: 20100101

REACTIONS (4)
  - COGNITIVE DISORDER [None]
  - FATIGUE [None]
  - LETHARGY [None]
  - MUSCULAR WEAKNESS [None]
